FAERS Safety Report 4748437-5 (Version None)
Quarter: 2005Q3

REPORT INFORMATION
  Report Type: 
  Country: None (occurrence: None)
  Receive Date: 20050818
  Receipt Date: 20050804
  Transmission Date: 20060218
  Serious: Yes (Other)
  Sender: FDA-Public Use
  Company Number: 2005111909

PATIENT
  Sex: Female
  Weight: 72.5755 kg

DRUGS (2)
  1. DILANTIN KAPSEAL [Suspect]
     Indication: CONVULSION
     Dosage: AM AND PM (100 MG, 2 IN 1 D), ORAL
     Route: 048
  2. DILANTIN [Suspect]
     Indication: CONVULSION
     Dosage: NOON (30 MG, 1 IN 1 D), ORAL
     Route: 048

REACTIONS (7)
  - DRUG LEVEL BELOW THERAPEUTIC [None]
  - DRUG LEVEL INCREASED [None]
  - FATIGUE [None]
  - LETHARGY [None]
  - PHARMACEUTICAL PRODUCT COMPLAINT [None]
  - SOMNOLENCE [None]
  - THYROID GLAND CANCER [None]
